FAERS Safety Report 7769717-5 (Version None)
Quarter: 2011Q3

REPORT INFORMATION
  Report Type: 
  Country: None (occurrence: None)
  Receive Date: 20110922
  Receipt Date: 20110525
  Transmission Date: 20111222
  Serious: Yes (Other)
  Sender: FDA-Public Use
  Company Number: US-ASTRAZENECA-2011SE32281

PATIENT
  Age: 20 Year
  Sex: Male

DRUGS (6)
  1. SEROQUEL XR [Suspect]
     Indication: AUTISM
     Route: 048
  2. SEROQUEL XR [Suspect]
     Route: 048
  3. SEROQUEL XR [Suspect]
     Route: 048
  4. SEROQUEL XR [Suspect]
     Indication: BIPOLAR DISORDER
     Route: 048
  5. SEROQUEL XR [Suspect]
     Indication: MENTAL RETARDATION
     Route: 048
  6. SEROQUEL XR [Suspect]
     Route: 048

REACTIONS (3)
  - DYSTONIA [None]
  - ATHETOSIS [None]
  - TARDIVE DYSKINESIA [None]
